FAERS Safety Report 25757979 (Version 1)
Quarter: 2025Q3

REPORT INFORMATION
  Report Type: Spontaneous
  Country: US (occurrence: US)
  Receive Date: 20250903
  Receipt Date: 20250903
  Transmission Date: 20251021
  Serious: No
  Sender: Hugel Aesthetics
  Company Number: US-Hugel Aesthetics-2183788

PATIENT
  Age: 59 Year
  Sex: Female

DRUGS (1)
  1. LETYBO [Suspect]
     Active Substance: LETIBOTULINUMTOXINA-WLBG
     Indication: Skin wrinkling
     Dates: start: 202507

REACTIONS (2)
  - Eye swelling [Unknown]
  - Product preparation error [Unknown]
